FAERS Safety Report 11500601 (Version 1)
Quarter: 2015Q3

REPORT INFORMATION
  Report Type: Spontaneous
  Country: PL (occurrence: PL)
  Receive Date: 20150914
  Receipt Date: 20150914
  Transmission Date: 20151125
  Serious: Yes (Other)
  Sender: FDA-Public Use
  Company Number: PHHY2015PL109730

PATIENT
  Sex: Male
  Weight: 115 kg

DRUGS (1)
  1. CICLOSPORIN [Suspect]
     Active Substance: CYCLOSPORINE
     Indication: PSORIASIS
     Dosage: 350 MG, QD
     Route: 048
     Dates: start: 20130423, end: 20130611

REACTIONS (4)
  - Hypoaesthesia [Recovered/Resolved]
  - Renal disorder [Recovered/Resolved]
  - Malaise [Recovered/Resolved]
  - Blood pressure increased [Recovered/Resolved]
